FAERS Safety Report 5243083-1 (Version None)
Quarter: 2007Q1

REPORT INFORMATION
  Report Type: 
  Country: None (occurrence: None)
  Receive Date: 20070215
  Receipt Date: 20070131
  Transmission Date: 20070707
  Serious: Yes (Other)
  Sender: FDA-Public Use
  Company Number: 2007US-05620

PATIENT
  Age: 19 Year
  Sex: Female

DRUGS (7)
  1. ZIDOVUDINE [Suspect]
     Indication: HIV INFECTION
     Dosage: 600 MG, QD, ORAL
     Route: 048
     Dates: start: 20060605
  2. TRIMETHOPRIM/SULFAMETHOXAZOLE (TMP) [Concomitant]
  3. MACROBID [Concomitant]
  4. CLOTRIMAZOLE ORAL TROCHES [Concomitant]
  5. REGLAN [Concomitant]
  6. PROMETHAZINE [Concomitant]
  7. CEFAZOLIN [Concomitant]

REACTIONS (4)
  - ANAEMIA [None]
  - DRUG EXPOSURE DURING PREGNANCY [None]
  - PREGNANCY [None]
  - PREMATURE LABOUR [None]
